FAERS Safety Report 25009050 (Version 1)
Quarter: 2025Q1

REPORT INFORMATION
  Report Type: Spontaneous
  Country: GB (occurrence: GB)
  Receive Date: 20250225
  Receipt Date: 20250225
  Transmission Date: 20250408
  Serious: Yes (Hospitalization, Other)
  Sender: BAYER HEALTHCARE PHARMACEUTICALS INC.
  Company Number: None

PATIENT
  Sex: Male

DRUGS (1)
  1. GADOBUTROL [Suspect]
     Active Substance: GADOBUTROL
     Indication: Diagnostic procedure
     Dates: start: 20250122, end: 20250122

REACTIONS (3)
  - Hypersensitivity [Recovered/Resolved]
  - Cyanosis [None]
  - Seizure [None]

NARRATIVE: CASE EVENT DATE: 20250122
